FAERS Safety Report 5723854-5 (Version None)
Quarter: 2008Q2

REPORT INFORMATION
  Report Type: 
  Country: None (occurrence: None)
  Receive Date: 20080429
  Receipt Date: 20080429
  Transmission Date: 20081010
  Serious: Yes (Hospitalization)
  Sender: FDA-Public Use
  Company Number: None

PATIENT
  Sex: Female
  Weight: 77.1115 kg

DRUGS (2)
  1. SUDAFED S.A. [Suspect]
     Indication: MULTIPLE ALLERGIES
     Dosage: DAILY PO  (DURATION: 1 TO 2 MONTHS)
     Route: 048
  2. MUCINEX D [Suspect]
     Indication: COUGH
     Dosage: 2 TABLETS EVERY 12 HRS. PO
     Route: 048
     Dates: start: 20070403, end: 20070411

REACTIONS (2)
  - BIPOLAR I DISORDER [None]
  - MANIA [None]
